FAERS Safety Report 5382821-4 (Version None)
Quarter: 2007Q2

REPORT INFORMATION
  Report Type: 
  Country: None (occurrence: None)
  Receive Date: 20070629
  Receipt Date: 20070412
  Transmission Date: 20071010
  Serious: Yes (Hospitalization)
  Sender: FDA-Public Use
  Company Number: US200704002787

PATIENT
  Age: 62 Year
  Sex: Female

DRUGS (5)
  1. HUMALOG [Suspect]
     Dates: start: 20030101
  2. INSULIN (INSULIN) [Concomitant]
  3. NEXIUM [Concomitant]
  4. LACTULOSE [Concomitant]
  5. GLUCOTROL [Concomitant]

REACTIONS (2)
  - LIVER DISORDER [None]
  - TRANSIENT ISCHAEMIC ATTACK [None]
